FAERS Safety Report 17136912 (Version 2)
Quarter: 2020Q1

REPORT INFORMATION
  Report Type: Report from Study
  Country: JP (occurrence: JP)
  Receive Date: 20191210
  Receipt Date: 20200130
  Transmission Date: 20200409
  Serious: No
  Sender: FDA-Public Use
  Company Number: JP-GALDERMA-JP19073033

PATIENT
  Age: 68 Year
  Sex: Male
  Weight: 62 kg

DRUGS (3)
  1. MARDUOX [Concomitant]
     Active Substance: BETAMETHASONE BUTYRATE PROPIONATE\MAXACALCITOL
     Indication: PRODUCT USED FOR UNKNOWN INDICATION
     Route: 061
     Dates: start: 2018
  2. OTEZLA [Concomitant]
     Active Substance: APREMILAST
     Indication: COLON CANCER
     Route: 048
     Dates: start: 20181114
  3. COMCLO [Suspect]
     Active Substance: CLOBETASOL PROPIONATE
     Indication: PSORIASIS
     Route: 061
     Dates: start: 20180908, end: 20181130

REACTIONS (2)
  - Underdose [Recovered/Resolved]
  - Inappropriate schedule of product administration [Recovered/Resolved]

NARRATIVE: CASE EVENT DATE: 20180908
